FAERS Safety Report 10697817 (Version 1)
Quarter: 2015Q1

REPORT INFORMATION
  Report Type: Spontaneous
  Country: IT (occurrence: None)
  Receive Date: 20150106
  Receipt Date: 20150106
  Transmission Date: 20150721
  Serious: Yes (Hospitalization)
  Sender: FDA-Public Use
  Company Number: IT-ALKEM-000801

PATIENT
  Age: 70 Year
  Sex: Male
  Weight: 75 kg

DRUGS (2)
  1. METFORMIN [Suspect]
     Active Substance: METFORMIN HYDROCHLORIDE
     Indication: PRODUCT USED FOR UNKNOWN INDICATION
  2. TAMSULOSIN (TAMSULOSIN) [Concomitant]
     Active Substance: TAMSULOSIN

REACTIONS (14)
  - Blood creatinine increased [None]
  - Vomiting [None]
  - Dehydration [None]
  - Ileostomy [None]
  - Abdominal pain [None]
  - Urine output increased [None]
  - Blood urea increased [None]
  - Lactic acidosis [None]
  - Nausea [None]
  - Depressed level of consciousness [None]
  - Haemodialysis [None]
  - Acute kidney injury [None]
  - Tachypnoea [None]
  - Hypotension [None]
